FAERS Safety Report 8357861-3 (Version None)
Quarter: 2012Q2

REPORT INFORMATION
  Report Type: 
  Country: None (occurrence: None)
  Receive Date: 20120511
  Receipt Date: 20120504
  Transmission Date: 20120825
  Serious: Yes (Other)
  Sender: FDA-Public Use
  Company Number: DAV-AE-AMO-12-02

PATIENT
  Age: 43 Year
  Sex: Female

DRUGS (9)
  1. METOPROLOL (LOPRESSOR) [Concomitant]
  2. CALCIUM [Concomitant]
  3. METHOTREXATE [Concomitant]
  4. LISINOPRIL [Concomitant]
  5. BENLYSTA [Suspect]
     Indication: SYSTEMIC LUPUS ERYTHEMATOSUS
     Dosage: INTRAVENOUSLY
     Route: 042
     Dates: start: 20120402
  6. FOLIC ACID [Concomitant]
  7. AMOXICILLIN [Suspect]
     Indication: PRODUCT USED FOR UNKNOWN INDICATION
     Dates: start: 20120413
  8. CYANOCOBALAMIN (VCIT B12) [Concomitant]
  9. VITAMIN B COMPLEX CAP [Concomitant]

REACTIONS (11)
  - PALPITATIONS [None]
  - PRODUCTIVE COUGH [None]
  - PRURITUS [None]
  - DRUG HYPERSENSITIVITY [None]
  - RHINORRHOEA [None]
  - HEADACHE [None]
  - ERYTHEMA [None]
  - SWELLING [None]
  - BLOOD PRESSURE INCREASED [None]
  - URTICARIA [None]
  - HYPOAESTHESIA ORAL [None]
